FAERS Safety Report 6184059-X (Version None)
Quarter: 2009Q2

REPORT INFORMATION
  Report Type: 
  Country: None (occurrence: None)
  Receive Date: 20090506
  Receipt Date: 20090506
  Transmission Date: 20091009
  Serious: Yes (Other)
  Sender: FDA-Public Use
  Company Number: None

PATIENT
  Sex: Female
  Weight: 20.4119 kg

DRUGS (1)
  1. MONTELUKAST SODIUM [Suspect]
     Dosage: ONE TAB PER DAY
     Dates: start: 20070401, end: 20070801

REACTIONS (1)
  - ABNORMAL BEHAVIOUR [None]
